FAERS Safety Report 4439590-1 (Version None)
Quarter: 2004Q3

REPORT INFORMATION
  Report Type: 
  Country: None (occurrence: None)
  Receive Date: 20040830
  Receipt Date: 20040820
  Transmission Date: 20050211
  Serious: Yes (Other)
  Sender: FDA-Public Use
  Company Number: 2004-08-1170

PATIENT

DRUGS (2)
  1. TEMODAR [Suspect]
     Dosage: ORAL
     Route: 048
  2. PHENYTOIN [Suspect]
     Dosage: ORAL
     Route: 048

REACTIONS (3)
  - CONVULSION [None]
  - DRUG INTERACTION [None]
  - DRUG LEVEL BELOW THERAPEUTIC [None]
